FAERS Safety Report 5137530-3 (Version None)
Quarter: 2006Q4

REPORT INFORMATION
  Report Type: 
  Country: None (occurrence: None)
  Receive Date: 20061030
  Receipt Date: 20051115
  Transmission Date: 20070319
  Serious: No
  Sender: FDA-Public Use
  Company Number: US-GLAXOSMITHKLINE-A0582400A

PATIENT
  Sex: Female

DRUGS (1)
  1. ADVAIR HFA [Suspect]
     Indication: ASTHMA
     Dosage: 1PUFF FOUR TIMES PER DAY
     Route: 055
     Dates: start: 20051101

REACTIONS (2)
  - DRUG EXPOSURE DURING PREGNANCY [None]
  - PALPITATIONS [None]
